FAERS Safety Report 21302757 (Version 5)
Quarter: 2022Q4

REPORT INFORMATION
  Report Type: Spontaneous
  Country: JP (occurrence: JP)
  Receive Date: 20220907
  Receipt Date: 20221014
  Transmission Date: 20230113
  Serious: Yes (Hospitalization)
  Sender: FDA-Public Use
  Company Number: JP-PFIZER INC-PV202200057768

PATIENT

DRUGS (1)
  1. VYNDAQEL [Suspect]
     Active Substance: TAFAMIDIS MEGLUMINE
     Indication: Hereditary neuropathic amyloidosis
     Dosage: 20 MG, DAILY
     Route: 048

REACTIONS (1)
  - Physical deconditioning [Unknown]

NARRATIVE: CASE EVENT DATE: 20220905
